FAERS Safety Report 7413722-5 (Version None)
Quarter: 2011Q2

REPORT INFORMATION
  Report Type: 
  Country: None (occurrence: None)
  Receive Date: 20110413
  Receipt Date: 20110408
  Transmission Date: 20111010
  Serious: Yes (Disabling, Other)
  Sender: FDA-Public Use
  Company Number: BR-PFIZER INC-2011070657

PATIENT
  Age: 55 Year
  Sex: Male
  Weight: 59.5 kg

DRUGS (6)
  1. NEXIUM [Concomitant]
     Dosage: UNK
     Dates: start: 20110318
  2. LYRICA [Suspect]
     Dosage: 1 CAPSULE IN MORNING AND TWO CAPSULES AT NIGHT
     Route: 048
     Dates: start: 20100318, end: 20110329
  3. OSCAL 500-D [Concomitant]
     Dosage: UNK
     Dates: start: 20110318
  4. STILNOX [Concomitant]
     Dosage: UNK
  5. MOTILIUM [Concomitant]
     Dosage: UNK
     Dates: start: 20110318
  6. AD-TIL [Concomitant]
     Dosage: UNK
     Dates: start: 20110318

REACTIONS (1)
  - PERIPHERAL SENSORIMOTOR NEUROPATHY [None]
